FAERS Safety Report 13347380 (Version 1)
Quarter: 2017Q1

REPORT INFORMATION
  Report Type: Spontaneous
  Country: US (occurrence: US)
  Receive Date: 20170317
  Receipt Date: 20170317
  Transmission Date: 20170428
  Serious: No
  Sender: FDA-Public Use
  Company Number: US-ALLERGAN-1659688US

PATIENT
  Sex: Female
  Weight: 43.99 kg

DRUGS (1)
  1. GELNIQUE [Suspect]
     Active Substance: OXYBUTYNIN
     Indication: HYPERTONIC BLADDER

REACTIONS (3)
  - Therapeutic response decreased [Unknown]
  - Dry skin [Not Recovered/Not Resolved]
  - Administration site irritation [Not Recovered/Not Resolved]
